FAERS Safety Report 5912292-8 (Version None)
Quarter: 2008Q4

REPORT INFORMATION
  Report Type: 
  Country: None (occurrence: None)
  Receive Date: 20081008
  Receipt Date: 20080319
  Transmission Date: 20090506
  Serious: Yes (Death, Life-Threatening)
  Sender: FDA-Public Use
  Company Number: GB-JNJCH-2008006788

PATIENT
  Age: 66 Year
  Sex: Male

DRUGS (13)
  1. ACETAMINOPHEN [Suspect]
     Indication: DRUG USE FOR UNKNOWN INDICATION
     Dosage: TEXT:UNSPECIFIED
     Route: 065
     Dates: start: 20070601, end: 20070601
  2. ACETAMINOPHEN [Suspect]
     Route: 065
  3. CITALOPRAM HYDROBROMIDE [Suspect]
     Indication: DEPRESSION
     Dosage: TEXT:20 MG
     Route: 065
     Dates: start: 20070601, end: 20070601
  4. CITALOPRAM HYDROBROMIDE [Suspect]
  5. ETORICOXIB [Suspect]
     Indication: MUSCULOSKELETAL PAIN
     Dosage: TEXT:90 MG
     Route: 048
     Dates: start: 20070601, end: 20070601
  6. ETORICOXIB [Suspect]
     Route: 065
  7. MIRTAZAPINE [Suspect]
     Indication: DRUG USE FOR UNKNOWN INDICATION
     Dosage: TEXT:UNSPECIFIED
     Route: 065
     Dates: start: 20070601, end: 20070601
  8. MIRTAZAPINE [Suspect]
     Route: 065
  9. OXYCODONE HCL [Suspect]
     Indication: MUSCULOSKELETAL PAIN
     Dosage: TEXT:20 MG
     Route: 065
     Dates: start: 20070601, end: 20070601
  10. OXYCODONE HCL [Suspect]
     Route: 065
  11. DICLOFENAC SODIUM [Concomitant]
     Indication: MUSCULOSKELETAL PAIN
     Dosage: TEXT:50 MG
     Route: 065
  12. DIHYDROCODEINE BITARTRATE INJ [Concomitant]
     Indication: MUSCULOSKELETAL PAIN
     Dosage: TEXT:30 MG
     Route: 065
  13. OXAZEPAM [Concomitant]
     Indication: ANXIETY
     Dosage: TEXT:10 MG
     Route: 065

REACTIONS (3)
  - CORONARY ARTERY DISEASE [None]
  - DRUG INTERACTION [None]
  - OVERDOSE [None]
